FAERS Safety Report 7048324-6 (Version None)
Quarter: 2010Q4

REPORT INFORMATION
  Report Type: 
  Country: None (occurrence: None)
  Receive Date: 20101015
  Receipt Date: 20101007
  Transmission Date: 20110411
  Serious: Yes (Hospitalization)
  Sender: FDA-Public Use
  Company Number: US-US-EMD SERONO, INC.-234900K09USA

PATIENT
  Sex: Female

DRUGS (2)
  1. REBIF [Suspect]
     Indication: MULTIPLE SCLEROSIS
     Route: 058
     Dates: start: 20080120
  2. IBUPROFEN [Concomitant]
     Route: 065

REACTIONS (3)
  - CONVULSION [None]
  - HYPERTHYROIDISM [None]
  - INJECTION SITE REACTION [None]
